FAERS Safety Report 6332852-2 (Version None)
Quarter: 2009Q3

REPORT INFORMATION
  Report Type: 
  Country: None (occurrence: None)
  Receive Date: 20090828
  Receipt Date: 20090819
  Transmission Date: 20100115
  Serious: Yes (Hospitalization)
  Sender: FDA-Public Use
  Company Number: US-ELI_LILLY_AND_COMPANY-US200908004090

PATIENT
  Age: 68 Year
  Sex: Male
  Weight: 76.644 kg

DRUGS (3)
  1. BYETTA [Suspect]
     Indication: TYPE 2 DIABETES MELLITUS
     Dosage: 5 UG, 2/D
     Route: 058
     Dates: start: 20080101, end: 20080101
  2. BYETTA [Suspect]
     Dosage: 10 UG, 2/D
     Route: 058
     Dates: start: 20080101
  3. LEVEMIR [Concomitant]

REACTIONS (7)
  - DECREASED APPETITE [None]
  - ILEUS [None]
  - OFF LABEL USE [None]
  - RENAL FAILURE [None]
  - URINARY RETENTION [None]
  - URINARY TRACT OBSTRUCTION [None]
  - WEIGHT DECREASED [None]
